FAERS Safety Report 12133319 (Version 1)
Quarter: 2016Q1

REPORT INFORMATION
  Report Type: Spontaneous
  Country: US (occurrence: US)
  Receive Date: 20160301
  Receipt Date: 20160301
  Transmission Date: 20160526
  Serious: Yes (Hospitalization, Other)
  Sender: FDA-Public Use
  Company Number: US-JNJFOC-20160223379

PATIENT
  Sex: Female

DRUGS (2)
  1. BENADRYL [Suspect]
     Active Substance: DIPHENHYDRAMINE HYDROCHLORIDE
     Indication: RASH
     Route: 048
  2. BENADRYL [Suspect]
     Active Substance: DIPHENHYDRAMINE HYDROCHLORIDE
     Indication: RASH
     Route: 048

REACTIONS (7)
  - Hypersensitivity [Recovered/Resolved]
  - Product use issue [Unknown]
  - Urticaria [Unknown]
  - Circulatory collapse [Recovered/Resolved]
  - Blister [Recovered/Resolved with Sequelae]
  - Dyspnoea [Unknown]
  - Off label use [Unknown]
